FAERS Safety Report 8350562-7 (Version None)
Quarter: 2012Q2

REPORT INFORMATION
  Report Type: 
  Country: None (occurrence: None)
  Receive Date: 20120510
  Receipt Date: 20120504
  Transmission Date: 20120825
  Serious: Yes (Other)
  Sender: FDA-Public Use
  Company Number: KW-JNJFOC-20120405595

PATIENT
  Sex: Female

DRUGS (4)
  1. PREZISTA [Suspect]
     Indication: HIV INFECTION
     Route: 048
     Dates: start: 20111225, end: 20120403
  2. TRUVADA [Concomitant]
     Indication: HIV INFECTION
     Dosage: ONCE DAILY FREQUENCY
     Route: 065
     Dates: start: 20111225
  3. RITONAVIR [Concomitant]
     Indication: HIV INFECTION
     Dosage: ONCE DAILY FREQUENCY
     Route: 065
     Dates: start: 20111225, end: 20120403
  4. SEPTRA [Concomitant]
     Indication: ANTIFUNGAL PROPHYLAXIS
     Dosage: END OF DAY
     Route: 065
     Dates: start: 20111201

REACTIONS (2)
  - RASH [None]
  - ERYTHEMA [None]
